FAERS Safety Report 8826308 (Version 1)
Quarter: 2012Q4

REPORT INFORMATION
  Report Type: 
  Country: US (occurrence: US)
  Receive Date: 20121008
  Receipt Date: 20121008
  Transmission Date: 20130627
  Serious: No
  Sender: FDA-Public Use
  Company Number: US-GLAXOSMITHKLINE-A0991610A

PATIENT
  Age: 42 Year
  Sex: Female

DRUGS (4)
  1. POTIGA [Suspect]
     Indication: CONVULSION
     Route: 048
     Dates: end: 201208
  2. ATIVAN [Concomitant]
     Indication: CONVULSION
     Dosage: 1TAB Per day
     Route: 048
  3. KEPPRA [Concomitant]
     Indication: CONVULSION
     Route: 048
  4. OXCARBAZEPINE [Concomitant]
     Indication: CONVULSION
     Dosage: 1TAB Twice per day
     Route: 048

REACTIONS (2)
  - Urinary retention [Recovered/Resolved]
  - Dysuria [Unknown]
